FAERS Safety Report 24462775 (Version 1)
Quarter: 2024Q4

REPORT INFORMATION
  Report Type: Spontaneous
  Country: CN (occurrence: CN)
  Receive Date: 20241018
  Receipt Date: 20241018
  Transmission Date: 20250115
  Serious: Yes (Other)
  Sender: GRIFOLS
  Company Number: CN-IGSA-BIG0031087

PATIENT
  Age: 71 Year
  Sex: Male

DRUGS (2)
  1. ALBUTEIN [Suspect]
     Active Substance: ALBUMIN HUMAN
     Indication: Renal cancer
     Dosage: 50 MILLILITER, SINGLE
     Route: 042
     Dates: start: 20241006, end: 20241006
  2. ALBUTEIN [Suspect]
     Active Substance: ALBUMIN HUMAN
     Indication: Blood albumin decreased

REACTIONS (4)
  - Pyrexia [Recovering/Resolving]
  - Rash [Recovering/Resolving]
  - Dyspnoea [Recovering/Resolving]
  - Ectropion [Recovering/Resolving]

NARRATIVE: CASE EVENT DATE: 20241006
